FAERS Safety Report 4748097-3 (Version None)
Quarter: 2005Q3

REPORT INFORMATION
  Report Type: 
  Country: None (occurrence: None)
  Receive Date: 20050818
  Receipt Date: 20050727
  Transmission Date: 20060218
  Serious: Yes (Other)
  Sender: FDA-Public Use
  Company Number: US-MERCK-0507USA04311

PATIENT
  Age: 54 Year
  Sex: Female
  Weight: 100 kg

DRUGS (13)
  1. VIOXX [Suspect]
     Indication: ARTHRITIS
     Route: 048
     Dates: start: 20010608, end: 20030309
  2. FUROSEMIDE [Concomitant]
     Route: 065
     Dates: start: 19990211, end: 20040914
  3. METFORMIN [Concomitant]
     Route: 065
     Dates: start: 20020604
  4. NIFEDIPINE [Concomitant]
     Route: 065
     Dates: start: 20001002
  5. QUININE [Concomitant]
     Route: 065
     Dates: start: 19970804
  6. ALLEGRA [Concomitant]
     Route: 065
     Dates: start: 19980723
  7. AMARYL [Concomitant]
     Route: 065
     Dates: start: 20030218
  8. AMARYL [Concomitant]
     Route: 065
  9. ATENOL [Concomitant]
     Route: 065
  10. BEXTRA [Concomitant]
     Route: 065
     Dates: start: 20030319
  11. LEVOXYL [Concomitant]
     Route: 065
     Dates: start: 20030115
  12. MAGNESIUM OXIDE [Concomitant]
     Route: 065
     Dates: start: 20030207
  13. TRAMADOL MSD [Concomitant]
     Route: 065

REACTIONS (2)
  - ATRIAL FIBRILLATION [None]
  - MYOCARDIAL INFARCTION [None]
